FAERS Safety Report 15762450 (Version 1)
Quarter: 2018Q4

REPORT INFORMATION
  Report Type: Spontaneous
  Country: DE (occurrence: DE)
  Receive Date: 20181226
  Receipt Date: 20181226
  Transmission Date: 20190205
  Serious: Yes (Hospitalization, Other)
  Sender: FDA-Public Use
  Company Number: DE-PFIZER INC-2018521867

PATIENT
  Age: 39 Year
  Sex: Male

DRUGS (2)
  1. LEVOMETHADONE [Suspect]
     Active Substance: LEVOMETHADONE
     Dosage: UNK
     Dates: start: 20180607
  2. GABAPENTIN. [Suspect]
     Active Substance: GABAPENTIN
     Dosage: UNK
     Dates: end: 20180609

REACTIONS (3)
  - Respiratory depression [Unknown]
  - Intentional product misuse [Unknown]
  - Drug level increased [Unknown]

NARRATIVE: CASE EVENT DATE: 20180619
